FAERS Safety Report 7215420-X (Version None)
Quarter: 2011Q1

REPORT INFORMATION
  Report Type: 
  Country: None (occurrence: None)
  Receive Date: 20110104
  Receipt Date: 20110104
  Transmission Date: 20110831
  Serious: Yes (Life-Threatening)
  Sender: FDA-Public Use
  Company Number: None

PATIENT
  Age: 53 Year
  Sex: Female

DRUGS (2)
  1. PROPOFOL [Suspect]
     Indication: ANAESTHESIA
     Dosage: 130MG X 1 IV (1 DOSE)
     Route: 042
  2. LIDOCAINE [Suspect]
     Indication: ANAESTHESIA
     Dosage: 80MG X 1 IV  1 DOSE
     Route: 042

REACTIONS (1)
  - CARDIAC ARREST [None]
